FAERS Safety Report 13530572 (Version 1)
Quarter: 2017Q2

REPORT INFORMATION
  Report Type: Report from Study
  Country: None (occurrence: ES)
  Receive Date: 20170510
  Receipt Date: 20170510
  Transmission Date: 20170830
  Serious: Yes (Other)
  Sender: FDA-Public Use
  Company Number: ES-ABBVIE-17P-144-1961216-00

PATIENT
  Age: 73 Year
  Sex: Female

DRUGS (1)
  1. DUODOPA [Suspect]
     Active Substance: CARBIDOPA\LEVODOPA
     Indication: PARKINSON^S DISEASE
     Route: 050
     Dates: start: 20160412

REACTIONS (6)
  - Device issue [Unknown]
  - Nausea [Unknown]
  - Bezoar [Recovered/Resolved]
  - Pyloric stenosis [Recovered/Resolved]
  - Device kink [Unknown]
  - Abdominal pain [Unknown]

NARRATIVE: CASE EVENT DATE: 201704
